FAERS Safety Report 7001596-6 (Version None)
Quarter: 2010Q3

REPORT INFORMATION
  Report Type: 
  Country: None (occurrence: None)
  Receive Date: 20100917
  Receipt Date: 20100917
  Transmission Date: 20110219
  Serious: Yes (Hospitalization)
  Sender: FDA-Public Use
  Company Number: None

PATIENT
  Age: 66 Year
  Sex: Female
  Weight: 63 kg

DRUGS (4)
  1. NITROFURANTOIN MACROCRYSTALLINE [Suspect]
     Indication: URINARY TRACT INFECTION
     Dosage: 100MG PO BID
     Route: 048
     Dates: start: 20100630, end: 20100704
  2. VENLFAXINE [Concomitant]
  3. ENOXAPARIN SODIUM [Concomitant]
  4. ZOSYN [Concomitant]

REACTIONS (4)
  - BACK PAIN [None]
  - HYPOTENSION [None]
  - MALAISE [None]
  - SEPSIS SYNDROME [None]
